FAERS Safety Report 7130223-2 (Version None)
Quarter: 2010Q4

REPORT INFORMATION
  Report Type: 
  Country: None (occurrence: None)
  Receive Date: 20101201
  Receipt Date: 20101122
  Transmission Date: 20110411
  Serious: Yes (Hospitalization, Other)
  Sender: FDA-Public Use
  Company Number: JP-JNJFOC-20100108245

PATIENT
  Sex: Female

DRUGS (8)
  1. CRAVIT [Suspect]
     Indication: URINARY TRACT INFECTION
     Route: 048
  2. ZOLOFT [Concomitant]
     Indication: DEPRESSION
     Route: 048
  3. ZOLOFT [Concomitant]
     Route: 048
  4. MYSLEE [Concomitant]
     Indication: INSOMNIA
     Route: 048
  5. HEAVY MAGNESIUM OXIDE [Concomitant]
     Indication: CONSTIPATION
     Route: 048
  6. HEAVY MAGNESIUM OXIDE [Concomitant]
     Route: 048
  7. CEFOPERAZONE SODIUM AND SULBACTAM SODIUM [Concomitant]
     Indication: URINARY TRACT INFECTION
     Route: 041
  8. SOLDEM 1 [Concomitant]
     Route: 041

REACTIONS (4)
  - ALTERED STATE OF CONSCIOUSNESS [None]
  - DECREASED APPETITE [None]
  - INCONTINENCE [None]
  - METABOLIC ENCEPHALOPATHY [None]
